FAERS Safety Report 9926021 (Version 9)
Quarter: 2018Q3

REPORT INFORMATION
  Report Type: Report from Study
  Country: FR (occurrence: FR)
  Receive Date: 20140226
  Receipt Date: 20180720
  Transmission Date: 20181010
  Serious: Yes (Hospitalization, Other)
  Sender: FDA-Public Use
  Company Number: FR-CELGENEUS-056-21880-14022467

PATIENT
  Age: 68 Year
  Sex: Female
  Weight: 62 kg

DRUGS (7)
  1. REVLIMID [Suspect]
     Active Substance: LENALIDOMIDE
     Indication: B-CELL LYMPHOMA
     Dosage: 10 MILLIGRAM
     Route: 048
     Dates: start: 20121010
  2. RITUXIMAB. [Concomitant]
     Active Substance: RITUXIMAB
     Indication: LYMPHOMA
     Route: 065
     Dates: start: 20121009, end: 20150105
  3. ASPEGIC [Concomitant]
     Active Substance: ASPIRIN DL-LYSINE
     Indication: EMBOLISM
     Dosage: 100 MILLIGRAM
     Route: 065
     Dates: start: 20121012
  4. ASPEGIC [Concomitant]
     Active Substance: ASPIRIN DL-LYSINE
     Indication: PROPHYLAXIS
     Route: 065
     Dates: start: 20121009
  5. MABTHERA [Suspect]
     Active Substance: RITUXIMAB
     Indication: B-CELL LYMPHOMA
     Route: 042
     Dates: start: 20121009, end: 20150105
  6. REVLIMID [Suspect]
     Active Substance: LENALIDOMIDE
     Dosage: 1 MILLIGRAM
     Route: 048
  7. MABTHERA [Suspect]
     Active Substance: RITUXIMAB
     Route: 041

REACTIONS (2)
  - Squamous cell carcinoma of the cervix [Recovered/Resolved]
  - Dyspepsia [Unknown]

NARRATIVE: CASE EVENT DATE: 20131120
